FAERS Safety Report 9415086 (Version 2)
Quarter: 2013Q4

REPORT INFORMATION
  Report Type: Report from Study
  Country: MX (occurrence: MX)
  Receive Date: 20130723
  Receipt Date: 20131101
  Transmission Date: 20140711
  Serious: Yes (Other)
  Sender: FDA-Public Use
  Company Number: PHHY2012MX039345

PATIENT
  Age: 25 Year
  Sex: Female

DRUGS (2)
  1. ONBREZ [Suspect]
     Indication: DYSPNOEA
     Dosage: UNK
  2. ONBREZ [Suspect]
     Indication: OFF LABEL USE

REACTIONS (4)
  - Gestational hypertension [Unknown]
  - Dyspnoea [Recovered/Resolved]
  - Exposure during pregnancy [Recovered/Resolved]
  - Normal newborn [Unknown]
